FAERS Safety Report 12171014 (Version 1)
Quarter: 2016Q1

REPORT INFORMATION
  Report Type: Spontaneous
  Country: AU (occurrence: None)
  Receive Date: 20160310
  Receipt Date: 20160310
  Transmission Date: 20160526
  Serious: Yes (Hospitalization, Disabling)
  Sender: FDA-Public Use
  Company Number: None

PATIENT
  Age: 71 Year
  Sex: Female
  Weight: 110 kg

DRUGS (1)
  1. PLAQUENIL [Suspect]
     Active Substance: HYDROXYCHLOROQUINE SULFATE
     Indication: SYSTEMIC LUPUS ERYTHEMATOSUS
     Dosage: 2 PER DAY ONCE DAILY
     Route: 048
     Dates: start: 20160205, end: 20160307

REACTIONS (4)
  - Cellulitis [None]
  - Blister [None]
  - Type 2 diabetes mellitus [None]
  - Wound secretion [None]

NARRATIVE: CASE EVENT DATE: 20160306
